FAERS Safety Report 21498229 (Version 1)
Quarter: 2022Q4

REPORT INFORMATION
  Report Type: Other
  Country: CN (occurrence: CN)
  Receive Date: 20221024
  Receipt Date: 20221024
  Transmission Date: 20230112
  Serious: Yes (Hospitalization)
  Sender: FDA-Public Use
  Company Number: CN-DEXPHARM-20222096

PATIENT
  Age: 71 Year
  Sex: Female
  Weight: 62 kg

DRUGS (3)
  1. VENLAFAXINE [Suspect]
     Active Substance: VENLAFAXINE HYDROCHLORIDE
     Indication: Depressed mood
     Dosage: VENLAFAXINE 150 MG/D HAD BEEN ADMINISTERED AT 8:00 A.M
  2. VENLAFAXINE [Suspect]
     Active Substance: VENLAFAXINE HYDROCHLORIDE
     Indication: Depressed mood
     Dosage: VENLAFAXINE DOSAGE WAS INCREASED TO 225 MG/D
  3. ENOXAPARIN SODIUM [Concomitant]
     Active Substance: ENOXAPARIN SODIUM
     Dosage: ENOXAPARIN SODIUM INJECTION 4000 IU EVERY 12 HOURS WAS IMMEDIATELY ADMINISTRATED FOR ANTICOAGULAT...
     Route: 050

REACTIONS (1)
  - Fibrin D dimer increased [Recovered/Resolved]
